FAERS Safety Report 8243821-X (Version None)
Quarter: 2012Q1

REPORT INFORMATION
  Report Type: 
  Country: None (occurrence: None)
  Receive Date: 20120329
  Receipt Date: 20120316
  Transmission Date: 20120608
  Serious: Yes (Other)
  Sender: FDA-Public Use
  Company Number: US-PFIZER INC-2012079152

PATIENT
  Sex: Female

DRUGS (2)
  1. OXYCODONE HYDROCHLORIDE [Suspect]
     Indication: PAIN
     Dosage: UNK
  2. MS CONTIN [Suspect]
     Indication: PAIN
     Dosage: UNK

REACTIONS (2)
  - SPINAL COMPRESSION FRACTURE [None]
  - INADEQUATE ANALGESIA [None]
